FAERS Safety Report 13154976 (Version 1)
Quarter: 2017Q1

REPORT INFORMATION
  Report Type: Spontaneous
  Country: US (occurrence: US)
  Receive Date: 20170126
  Receipt Date: 20170126
  Transmission Date: 20170428
  Serious: Yes (Hospitalization, Other)
  Sender: FDA-Public Use
  Company Number: US-SA-2017SA013124

PATIENT
  Age: 50 Year
  Sex: Male

DRUGS (2)
  1. PRALUENT [Suspect]
     Active Substance: ALIROCUMAB
     Route: 065
     Dates: start: 201607, end: 20170102
  2. ALIROCUMAB PREFILLED PEN [Concomitant]
     Active Substance: ALIROCUMAB
     Dates: start: 201607, end: 20170101

REACTIONS (5)
  - Dyspnoea [Unknown]
  - Coronary artery disease [Unknown]
  - Tachycardia [Unknown]
  - Muscular weakness [Unknown]
  - Abasia [Unknown]

NARRATIVE: CASE EVENT DATE: 201610
